FAERS Safety Report 20547529 (Version 2)
Quarter: 2022Q2

REPORT INFORMATION
  Report Type: Spontaneous
  Country: RU (occurrence: RU)
  Receive Date: 20220303
  Receipt Date: 20220406
  Transmission Date: 20220721
  Serious: Yes (Life-Threatening)
  Sender: FDA-Public Use
  Company Number: RU-ABBOTT-2022A-1346253

PATIENT
  Age: 4 Year
  Sex: Male
  Weight: 17 kg

DRUGS (1)
  1. CREON [Suspect]
     Active Substance: PANCRELIPASE AMYLASE\PANCRELIPASE LIPASE\PANCRELIPASE PROTEASE
     Indication: Cystic fibrosis
     Dosage: DAILY DOSE: 42 CAPSULES?REON 10000
     Route: 048
     Dates: start: 20211219, end: 20211229

REACTIONS (5)
  - Diarrhoea haemorrhagic [Recovered/Resolved]
  - Haemorrhoids [Recovered/Resolved]
  - Rectal fissure [Recovered/Resolved]
  - Product quality issue [Unknown]
  - Abdominal pain [Recovered/Resolved]

NARRATIVE: CASE EVENT DATE: 20211219
